FAERS Safety Report 4838375-1 (Version None)
Quarter: 2005Q4

REPORT INFORMATION
  Report Type: 
  Country: None (occurrence: None)
  Receive Date: 20051123
  Receipt Date: 20051114
  Transmission Date: 20060501
  Serious: Yes (Other)
  Sender: FDA-Public Use
  Company Number: 2005155900

PATIENT
  Sex: Female
  Weight: 56.6996 kg

DRUGS (3)
  1. DEPO-PROVERA [Suspect]
     Indication: AMENORRHOEA
     Dosage: (1ST INJECTION, EVERY 2 MONTHS), INTRAMUSCULAR
     Route: 030
     Dates: start: 19910101, end: 19910101
  2. DEPO-PROVERA [Suspect]
     Indication: CONTRACEPTION
     Dosage: (1ST INJECTION, EVERY 2 MONTHS), INTRAMUSCULAR
     Route: 030
     Dates: start: 19910101, end: 19910101
  3. DRUG, UNSPECIFIED (DRUG, UNSPECIFIED) [Concomitant]

REACTIONS (15)
  - ABNORMAL BEHAVIOUR [None]
  - AMENORRHOEA [None]
  - ASTHENIA [None]
  - BIPOLAR DISORDER [None]
  - BLINDNESS TRANSIENT [None]
  - DRUG INEFFECTIVE [None]
  - FALL [None]
  - FEELING ABNORMAL [None]
  - LIBIDO DECREASED [None]
  - LOSS OF CONSCIOUSNESS [None]
  - NAUSEA [None]
  - PARALYSIS [None]
  - SENSORY LOSS [None]
  - VOMITING [None]
  - WEIGHT INCREASED [None]
